FAERS Safety Report 11097320 (Version 2)
Quarter: 2015Q2

REPORT INFORMATION
  Report Type: Spontaneous
  Country: CN (occurrence: CN)
  Receive Date: 20150507
  Receipt Date: 20150520
  Transmission Date: 20150821
  Serious: Yes (Hospitalization, Other)
  Sender: FDA-Public Use
  Company Number: CN-GILEAD-2015-0151811

PATIENT
  Sex: Male

DRUGS (3)
  1. HEPSERA [Suspect]
     Active Substance: ADEFOVIR DIPIVOXIL
     Indication: HEPATITIS B
     Dosage: UNK
     Route: 048
     Dates: start: 2007, end: 2010
  2. HEPSERA [Suspect]
     Active Substance: ADEFOVIR DIPIVOXIL
     Dosage: UNK
     Route: 048
  3. ENTECAVIR. [Suspect]
     Active Substance: ENTECAVIR
     Indication: HEPATITIS B
     Dosage: UNK
     Route: 065
     Dates: start: 2010

REACTIONS (6)
  - Fanconi syndrome acquired [Recovered/Resolved]
  - Abasia [Recovered/Resolved]
  - Osteoporosis [Unknown]
  - Asthenia [Recovered/Resolved]
  - Paralysis [Recovered/Resolved]
  - Body height decreased [Unknown]

NARRATIVE: CASE EVENT DATE: 2010
